FAERS Safety Report 7967740-9 (Version None)
Quarter: 2011Q4

REPORT INFORMATION
  Report Type: 
  Country: None (occurrence: None)
  Receive Date: 20111209
  Receipt Date: 20111209
  Transmission Date: 20120403
  Serious: Yes (Other)
  Sender: FDA-Public Use
  Company Number: None

PATIENT
  Age: 53 Year
  Sex: Female
  Weight: 70.76 kg

DRUGS (2)
  1. DEPO-MEDROL [Suspect]
     Indication: INJECTION
  2. DEPO-MEDROL [Suspect]
     Indication: STEROID THERAPY

REACTIONS (1)
  - ARACHNOIDITIS [None]
